FAERS Safety Report 15402179 (Version 1)
Quarter: 2018Q3

REPORT INFORMATION
  Report Type: Spontaneous
  Country: US (occurrence: US)
  Receive Date: 20180915
  Receipt Date: 20180915
  Transmission Date: 20181010
  Serious: Yes (Other)
  Sender: FDA-Public Use
  Company Number: None

PATIENT
  Age: 29 Year
  Sex: Female
  Weight: 61.23 kg

DRUGS (1)
  1. KYLEENA [Suspect]
     Active Substance: LEVONORGESTREL
     Indication: ECZEMA

REACTIONS (15)
  - Premenstrual syndrome [None]
  - Malaise [None]
  - Breast tenderness [None]
  - Mental status changes [None]
  - Weight increased [None]
  - Generalised oedema [None]
  - Lethargy [None]
  - Hypersensitivity [None]
  - Abdominal distension [None]
  - Drug hypersensitivity [None]
  - Alopecia [None]
  - Eczema [None]
  - Apathy [None]
  - Sleep disorder [None]
  - Menstruation irregular [None]

NARRATIVE: CASE EVENT DATE: 20180401
